FAERS Safety Report 4879911-9 (Version None)
Quarter: 2006Q1

REPORT INFORMATION
  Report Type: 
  Country: None (occurrence: None)
  Receive Date: 20060111
  Receipt Date: 20060103
  Transmission Date: 20060701
  Serious: Yes (Hospitalization)
  Sender: FDA-Public Use
  Company Number: 2005166115

PATIENT
  Age: 30 Year
  Sex: Female
  Weight: 61.2356 kg

DRUGS (3)
  1. SUDAFED SINUS HEADACHE CAPLETS (PARACETAMOL, PSEUDOEPHEDRINE) [Suspect]
     Indication: SINUS HEADACHE
     Dosage: 4 CAPLETS EACH DAY ORAL
     Route: 048
     Dates: start: 20050203, end: 20050204
  2. MEDINITE (DEXTROMETHORPHAN HYDROBROMIDE DOXYLAMINE SUCCINATE, EPHEDRIN [Suspect]
     Dosage: ORAL
     Route: 048
     Dates: start: 20050204
  3. CONTRACEPTIVE, UNSPECIFIED [Concomitant]

REACTIONS (8)
  - DEHYDRATION [None]
  - DIARRHOEA [None]
  - DIZZINESS [None]
  - DRUG HYPERSENSITIVITY [None]
  - INFLUENZA [None]
  - LOSS OF CONSCIOUSNESS [None]
  - SYNCOPE [None]
  - VOMITING [None]
